FAERS Safety Report 11641391 (Version 1)
Quarter: 2015Q4

REPORT INFORMATION
  Report Type: Spontaneous
  Country: PT (occurrence: PT)
  Receive Date: 20151019
  Receipt Date: 20151019
  Transmission Date: 20160304
  Serious: Yes (Hospitalization, Other)
  Sender: FDA-Public Use
  Company Number: PHHY2015PT125581

PATIENT
  Age: 58 Year
  Sex: Male
  Weight: 77 kg

DRUGS (5)
  1. RELMUS [Concomitant]
     Active Substance: THIOCOLCHICOSIDE
     Indication: NECK PAIN
     Dosage: 1 DF, QD
     Route: 030
  2. VOLTAREN [Suspect]
     Active Substance: DICLOFENAC SODIUM
     Indication: NECK PAIN
     Dosage: 1 DF, QD
     Route: 030
     Dates: start: 20150623, end: 20150929
  3. LISINOPRIL. [Concomitant]
     Active Substance: LISINOPRIL
     Indication: HYPERTENSION
     Dosage: 5 MG, QD
     Route: 048
  4. TRAMAL [Concomitant]
     Active Substance: TRAMADOL
     Indication: NECK PAIN
     Dosage: 1 DF, QD
     Route: 042
  5. METOCLOPRAMIDA [Concomitant]
     Indication: PRODUCT USED FOR UNKNOWN INDICATION
     Dosage: 1 DF, QD
     Route: 042

REACTIONS (2)
  - Lip oedema [Recovering/Resolving]
  - Oropharyngeal discomfort [Recovering/Resolving]

NARRATIVE: CASE EVENT DATE: 20150929
